FAERS Safety Report 5780447-1 (Version None)
Quarter: 2008Q2

REPORT INFORMATION
  Report Type: 
  Country: None (occurrence: None)
  Receive Date: 20080620
  Receipt Date: 20080611
  Transmission Date: 20081010
  Serious: Yes (Other)
  Sender: FDA-Public Use
  Company Number: US-AMGEN-KDL286509

PATIENT
  Sex: Female

DRUGS (7)
  1. ENBREL [Suspect]
     Indication: RHEUMATOID ARTHRITIS
     Route: 058
     Dates: start: 19990215, end: 20080501
  2. METHOTREXATE [Concomitant]
     Route: 048
  3. METFORMIN [Concomitant]
  4. ACCUPRIL [Concomitant]
  5. CLONIDINE [Concomitant]
  6. SULINDAC [Concomitant]
  7. NORVASC [Concomitant]

REACTIONS (5)
  - BALANCE DISORDER [None]
  - DIZZINESS [None]
  - MOTOR DYSFUNCTION [None]
  - MUSCULAR WEAKNESS [None]
  - SENSORY DISTURBANCE [None]
